FAERS Safety Report 21734934 (Version 12)
Quarter: 2024Q3

REPORT INFORMATION
  Report Type: Spontaneous
  Country: IN (occurrence: IN)
  Receive Date: 20221215
  Receipt Date: 20240905
  Transmission Date: 20241017
  Serious: Yes (Hospitalization, Other)
  Sender: PFIZER
  Company Number: IN-PFIZER INC-PV202200122718

PATIENT
  Age: 66 Year
  Sex: Female

DRUGS (4)
  1. LORLATINIB [Suspect]
     Active Substance: LORLATINIB
     Indication: Lung adenocarcinoma
     Dosage: 100 MG
     Route: 048
     Dates: start: 202101
  2. LORLATINIB [Suspect]
     Active Substance: LORLATINIB
     Dosage: 100 MG, 1X/DAY
     Route: 048
     Dates: start: 20221118
  3. LORLATINIB [Suspect]
     Active Substance: LORLATINIB
     Dosage: ON AN EMPTY STOMACH X 4 MONTHS(WITH PAP)
     Route: 048
     Dates: start: 20230106, end: 202310
  4. ROSUVAZ [Concomitant]
     Dosage: 10 MG, 1X/DAY

REACTIONS (20)
  - General physical health deterioration [Recovered/Resolved]
  - Diplopia [Unknown]
  - Ataxia [Unknown]
  - Disorientation [Unknown]
  - Somnolence [Unknown]
  - Cerebral atrophy [Unknown]
  - Electrocardiogram QT prolonged [Unknown]
  - Carcinoembryonic antigen increased [Unknown]
  - Coma [Unknown]
  - Loss of consciousness [Unknown]
  - Neoplasm progression [Unknown]
  - Motor dysfunction [Unknown]
  - Gait disturbance [Unknown]
  - Lipids abnormal [Unknown]
  - White matter lesion [Unknown]
  - Blood pressure increased [Unknown]
  - Body mass index increased [Unknown]
  - Body surface area increased [Unknown]
  - Vertigo [Unknown]
  - Eye disorder [Unknown]

NARRATIVE: CASE EVENT DATE: 20220101
